FAERS Safety Report 9622696 (Version 1)
Quarter: 2013Q4

REPORT INFORMATION
  Report Type: Spontaneous
  Country: US (occurrence: None)
  Receive Date: 20131010
  Receipt Date: 20131010
  Transmission Date: 20140711
  Serious: Yes (Hospitalization)
  Sender: FDA-Public Use
  Company Number: 2013-US-001589

PATIENT
  Age: 53 Year
  Sex: Female

DRUGS (1)
  1. XYREM [Suspect]
     Indication: APNOEA
     Route: 048
     Dates: start: 20091124

REACTIONS (4)
  - Orthostatic hypotension [None]
  - Ataxia [None]
  - Confusional state [None]
  - Activities of daily living impaired [None]
